FAERS Safety Report 7326519-1 (Version None)
Quarter: 2011Q1

REPORT INFORMATION
  Report Type: 
  Country: None (occurrence: None)
  Receive Date: 20110302
  Receipt Date: 20100921
  Transmission Date: 20110831
  Serious: Yes (Hospitalization)
  Sender: FDA-Public Use
  Company Number: US-BAYER-201020804NA

PATIENT
  Sex: Female
  Weight: 54.422 kg

DRUGS (3)
  1. MS CONTIN [Concomitant]
     Indication: BACK PAIN
     Dosage: UNK
     Dates: start: 20040101, end: 20080101
  2. YAZ [Suspect]
     Indication: PRODUCT USED FOR UNKNOWN INDICATION
     Dosage: UNK UNK, QD
     Route: 048
     Dates: start: 20040801, end: 20080101
  3. TUMS [CALCIUM CARBONATE] [Concomitant]

REACTIONS (4)
  - NAUSEA [None]
  - GALLBLADDER CHOLESTEROLOSIS [None]
  - ABDOMINAL PAIN UPPER [None]
  - CHOLECYSTITIS CHRONIC [None]
